FAERS Safety Report 4991976-2 (Version None)
Quarter: 2006Q2

REPORT INFORMATION
  Report Type: 
  Country: None (occurrence: None)
  Receive Date: 20060504
  Receipt Date: 20060405
  Transmission Date: 20061013
  Serious: Yes (Other)
  Sender: FDA-Public Use
  Company Number: US-MERCK-0604USA00599

PATIENT
  Age: 52 Year
  Sex: Female

DRUGS (1)
  1. FOSAMAX [Suspect]
     Indication: OSTEOPOROSIS
     Route: 048
     Dates: start: 20040101, end: 20060101

REACTIONS (9)
  - DENTAL CARIES [None]
  - DISCOMFORT [None]
  - DRY SOCKET [None]
  - EXOSTOSIS [None]
  - PRIMARY SEQUESTRUM [None]
  - SWELLING [None]
  - TENDERNESS [None]
  - TOOTH FRACTURE [None]
  - TOOTH INFECTION [None]
